FAERS Safety Report 20493501 (Version 2)
Quarter: 2022Q1

REPORT INFORMATION
  Report Type: Spontaneous
  Country: JP (occurrence: JP)
  Receive Date: 20220221
  Receipt Date: 20220311
  Transmission Date: 20220423
  Serious: Yes (Death, Life-Threatening, Hospitalization, Disabling, Other)
  Sender: FDA-Public Use
  Company Number: JP-ABBVIE-22K-087-4274325-00

PATIENT
  Age: 86 Year
  Sex: Female

DRUGS (11)
  1. LEVOBUPIVACAINE HYDROCHLORIDE [Suspect]
     Active Substance: LEVOBUPIVACAINE HYDROCHLORIDE
     Indication: Analgesic therapy
     Dosage: 1.3 MG/L G
     Route: 008
     Dates: start: 20211222, end: 20211222
  2. LEVOBUPIVACAINE HYDROCHLORIDE [Suspect]
     Active Substance: LEVOBUPIVACAINE HYDROCHLORIDE
     Dosage: 2 TO 3 ML, THREE TIMES
     Route: 008
     Dates: start: 20211222, end: 20211222
  3. LEVOBUPIVACAINE HYDROCHLORIDE [Suspect]
     Active Substance: LEVOBUPIVACAINE HYDROCHLORIDE
     Route: 008
     Dates: start: 20211222, end: 20211222
  4. REMIFENTANIL HYDROCHLORIDE [Suspect]
     Active Substance: REMIFENTANIL HYDROCHLORIDE
     Indication: Analgesic therapy
     Dosage: 1 TO 3ML/H, ONCE
     Route: 041
     Dates: start: 20211222, end: 20211222
  5. ROCURONIUM BROMIDE [Suspect]
     Active Substance: ROCURONIUM BROMIDE
     Indication: Hypotonia
     Dosage: 10 TO 30 MG, SIX TIMES
     Route: 042
     Dates: start: 20211222, end: 20211222
  6. FENTANYL CITRATE [Suspect]
     Active Substance: FENTANYL CITRATE
     Indication: Analgesic therapy
     Dosage: 25 TO 50 MCG, SEVEN TIMES
     Route: 042
     Dates: start: 20211222, end: 20211222
  7. SUPRANE [Concomitant]
     Active Substance: DESFLURANE
     Indication: Maintenance of anaesthesia
     Dosage: 3 TO 4 PERCENT, ONCE
     Route: 055
     Dates: start: 20211222, end: 20211222
  8. PROPOFOL [Concomitant]
     Active Substance: PROPOFOL
     Indication: Induction of anaesthesia
     Route: 042
     Dates: start: 20211222, end: 20211222
  9. MIDAZOLAM [Concomitant]
     Active Substance: MIDAZOLAM
     Indication: Induction of anaesthesia
     Route: 042
     Dates: start: 20211222, end: 20211222
  10. EPHEDRINE HYDROCHLORIDE [Concomitant]
     Active Substance: EPHEDRINE HYDROCHLORIDE
     Indication: Blood pressure increased
     Dosage: 8 MG, 4 MG
     Route: 042
     Dates: start: 20211222, end: 20211222
  11. CEFAZOLIN SODIUM [Concomitant]
     Active Substance: CEFAZOLIN SODIUM
     Indication: Infection prophylaxis
     Dosage: 3 G, 1 G
     Route: 041
     Dates: start: 20211222, end: 20211222

REACTIONS (1)
  - Cardiac arrest [Fatal]

NARRATIVE: CASE EVENT DATE: 20211222
